FAERS Safety Report 8475510 (Version 2)
Quarter: 2012Q4

REPORT INFORMATION
  Report Type: 
  Country: BE (occurrence: BE)
  Receive Date: 20120326
  Receipt Date: 20121017
  Transmission Date: 20130627
  Serious: Yes (Hospitalization)
  Sender: FDA-Public Use
  Company Number: BE-AMGEN-BELSP2012018051

PATIENT
  Age: 32 Year
  Sex: Female
  Weight: 63 kg

DRUGS (7)
  1. NEUPOGEN [Suspect]
     Indication: MALIGNANT LYMPHOID NEOPLASM
     Dosage: 6 mg, UNK
     Route: 058
     Dates: start: 20111229
  2. RITUXIMAB [Suspect]
     Indication: MALIGNANT LYMPHOID NEOPLASM
     Dosage: 615 mg, UNK
     Route: 042
     Dates: start: 20120124
  3. CYCLOPHOSPHAMIDE [Suspect]
     Indication: MALIGNANT LYMPHOID NEOPLASM
     Dosage: 1215 mg, UNK
     Route: 042
     Dates: start: 20111228
  4. DOXORUBICIN [Suspect]
     Indication: MALIGNANT LYMPHOID NEOPLASM
     Dosage: 81 mg, UNK
     Route: 042
     Dates: start: 20111228
  5. VINCRISTINE [Suspect]
     Indication: MALIGNANT LYMPHOID NEOPLASM
     Dosage: 2 mg, UNK
     Route: 042
     Dates: start: 20111228
  6. PREDNISONE [Suspect]
     Indication: MALIGNANT LYMPHOID NEOPLASM
     Dosage: 500 mg, UNK
     Route: 048
     Dates: start: 20111228
  7. PREDNISONE [Suspect]
     Dosage: 100 mg, UNK

REACTIONS (1)
  - Febrile neutropenia [Recovered/Resolved]
